FAERS Safety Report 8410587-X (Version None)
Quarter: 2012Q2

REPORT INFORMATION
  Report Type: 
  Country: None (occurrence: None)
  Receive Date: 20120605
  Receipt Date: 20120522
  Transmission Date: 20120825
  Serious: Yes (Other)
  Sender: FDA-Public Use
  Company Number: US-JNJFOC-20120519092

PATIENT
  Sex: Female

DRUGS (5)
  1. ACETAMINOPHEN [Suspect]
     Route: 065
  2. GLYBURIDE [Concomitant]
     Indication: DIABETES MELLITUS
     Dosage: DAILY
     Route: 065
  3. METFORMIN HCL [Concomitant]
     Indication: DIABETES MELLITUS
  4. ACETAMINOPHEN [Suspect]
     Indication: ARTHRALGIA
     Dosage: STARTED RECEIVING ONE YEAR AGO, STOPPED TAKING DRUG FIVE MONTHS AGO.
     Route: 065
  5. CAPTOPRIL [Concomitant]
     Route: 065

REACTIONS (1)
  - HEPATIC ENZYME INCREASED [None]
